FAERS Safety Report 20089979 (Version 1)
Quarter: 2021Q4

REPORT INFORMATION
  Report Type: Report from Study
  Country: TW (occurrence: TW)
  Receive Date: 20211119
  Receipt Date: 20211119
  Transmission Date: 20220303
  Serious: Yes (Death, Hospitalization, Other)
  Sender: FDA-Public Use
  Company Number: TW-BAYER-2021A249535

PATIENT
  Age: 87 Year
  Sex: Male

DRUGS (1)
  1. ILOPROST [Suspect]
     Active Substance: ILOPROST
     Indication: Pulmonary arterial hypertension
     Dosage: 1 AMP INHALATION Q4HR
     Route: 055
     Dates: start: 20160622, end: 202110

REACTIONS (3)
  - Death [Fatal]
  - Asthma [Unknown]
  - Metastatic lymphoma [Unknown]

NARRATIVE: CASE EVENT DATE: 20210101
